FAERS Safety Report 16867537 (Version 3)
Quarter: 2020Q3

REPORT INFORMATION
  Report Type: Spontaneous
  Country: US (occurrence: US)
  Receive Date: 20190930
  Receipt Date: 20200930
  Transmission Date: 20201102
  Serious: No
  Sender: FDA-Public Use
  Company Number: US-INDIVIOR LIMITED-INDV-120884-2019

PATIENT
  Age: 41 Year
  Sex: Male

DRUGS (2)
  1. SUBLOCADE [Suspect]
     Active Substance: BUPRENORPHINE
     Indication: DRUG DEPENDENCE
     Dosage: 100 MILLIGRAM, QMO
     Route: 065
     Dates: start: 201904
  2. LIDOCAINE. [Concomitant]
     Active Substance: LIDOCAINE
     Indication: LOCAL ANAESTHESIA
     Dosage: 1 PERCENT, UNKNOWN
     Route: 051
     Dates: start: 2019

REACTIONS (3)
  - Injection site vesicles [Unknown]
  - Injection site extravasation [Recovered/Resolved]
  - Injection site inflammation [Unknown]

NARRATIVE: CASE EVENT DATE: 2019
